FAERS Safety Report 25996333 (Version 2)
Quarter: 2025Q4

REPORT INFORMATION
  Report Type: Report from Study
  Country: AR (occurrence: AR)
  Receive Date: 20251104
  Receipt Date: 20251118
  Transmission Date: 20260118
  Serious: Yes (Hospitalization)
  Sender: ELI LILLY AND COMPANY
  Company Number: AR-Merck Healthcare KGaA-2025055463

PATIENT
  Age: 85 Year
  Sex: Female

DRUGS (1)
  1. CETUXIMAB [Suspect]
     Active Substance: CETUXIMAB
     Indication: Colon cancer
     Dosage: UNK UNK, OTHER (ONCE IN EVERY TWO WEEKS)
     Route: 042
     Dates: start: 20250521

REACTIONS (6)
  - Laboratory test abnormal [Recovered/Resolved]
  - Oral disorder [Recovered/Resolved]
  - Decreased appetite [Recovered/Resolved]
  - Vomiting [Recovered/Resolved]
  - Rash [Recovered/Resolved]
  - Off label use [Unknown]

NARRATIVE: CASE EVENT DATE: 20250724
